FAERS Safety Report 25613609 (Version 3)
Quarter: 2025Q3

REPORT INFORMATION
  Report Type: Report from Study
  Country: EU (occurrence: EU)
  Receive Date: 20250728
  Receipt Date: 20250929
  Transmission Date: 20251021
  Serious: Yes (Other)
  Sender: MYLAN
  Company Number: EU-ROCHE-10000276067

PATIENT
  Age: 79 Year
  Sex: Male

DRUGS (29)
  1. PREDNISONE [Suspect]
     Active Substance: PREDNISONE
     Indication: Diffuse large B-cell lymphoma
  2. POLIVY [Suspect]
     Active Substance: POLATUZUMAB VEDOTIN-PIIQ
     Indication: Diffuse large B-cell lymphoma
  3. POLIVY [Suspect]
     Active Substance: POLATUZUMAB VEDOTIN-PIIQ
     Dosage: 0.8 MILLIGRAM/KILOGRAM, Q21D
     Dates: start: 20250127
  4. RITUXIMAB [Suspect]
     Active Substance: RITUXIMAB
     Indication: Diffuse large B-cell lymphoma
  5. RITUXIMAB [Suspect]
     Active Substance: RITUXIMAB
     Dosage: 375 MILLIGRAM/SQ. METER, Q21D
     Dates: start: 20250127
  6. DOXORUBICIN [Suspect]
     Active Substance: DOXORUBICIN
     Indication: Diffuse large B-cell lymphoma
  7. DOXORUBICIN [Suspect]
     Active Substance: DOXORUBICIN
     Dosage: 50 MILLIGRAM/SQ. METER, Q21D
     Dates: start: 20250127
  8. CYCLOPHOSPHAMIDE [Suspect]
     Active Substance: CYCLOPHOSPHAMIDE
     Indication: Diffuse large B-cell lymphoma
  9. CYCLOPHOSPHAMIDE [Suspect]
     Active Substance: CYCLOPHOSPHAMIDE
  10. PREDNISONE [Suspect]
     Active Substance: PREDNISONE
     Indication: Diffuse large B-cell lymphoma
     Dosage: 80 MILLIGRAM, Q21D
     Dates: start: 20250127
  11. PIPERACILLIN SODIUM\TAZOBACTAM SODIUM [Concomitant]
     Active Substance: PIPERACILLIN SODIUM\TAZOBACTAM SODIUM
     Dates: start: 20250317, end: 20250414
  12. UNSPECIFIED INGREDIENT [Concomitant]
     Active Substance: UNSPECIFIED INGREDIENT
     Dates: start: 20250102, end: 20250214
  13. CEFTRIAXONE [Concomitant]
     Active Substance: CEFTRIAXONE
     Dates: start: 20250207, end: 20250214
  14. LEVOTHYROXINE SODIUM [Concomitant]
     Active Substance: LEVOTHYROXINE SODIUM
  15. AMLODIPINE\INDAPAMIDE\PERINDOPRIL [Concomitant]
     Active Substance: AMLODIPINE\INDAPAMIDE\PERINDOPRIL
  16. ENOXAPARIN SODIUM [Concomitant]
     Active Substance: ENOXAPARIN SODIUM
  17. FILGRASTIM [Concomitant]
     Active Substance: FILGRASTIM
  18. LYRICA [Concomitant]
     Active Substance: PREGABALIN
  19. ACYCLOVIR [Concomitant]
     Active Substance: ACYCLOVIR
  20. BACTRIM [Concomitant]
     Active Substance: SULFAMETHOXAZOLE\TRIMETHOPRIM
  21. PANTOPRAZOLE [Concomitant]
     Active Substance: PANTOPRAZOLE
  22. ALLOPURINOL [Concomitant]
     Active Substance: ALLOPURINOL
  23. LORAZEPAM [Concomitant]
     Active Substance: LORAZEPAM
  24. FENTANYL [Concomitant]
     Active Substance: FENTANYL
     Dates: start: 20241124, end: 20250214
  25. PREDNISONE [Concomitant]
     Active Substance: PREDNISONE
     Dates: start: 20241218, end: 20250122
  26. PREDNISONE [Concomitant]
     Active Substance: PREDNISONE
     Dates: start: 20250128, end: 20250131
  27. ABILIFY [Concomitant]
     Active Substance: ARIPIPRAZOLE
     Dates: start: 20250122, end: 20250407
  28. FUROSEMIDE [Concomitant]
     Active Substance: FUROSEMIDE
     Dates: start: 20250122, end: 20250407
  29. PIPERACILLIN SODIUM\TAZOBACTAM SODIUM [Concomitant]
     Active Substance: PIPERACILLIN SODIUM\TAZOBACTAM SODIUM
     Dates: start: 20241112, end: 20241120

REACTIONS (6)
  - Bacterial sepsis [Recovered/Resolved]
  - Deep vein thrombosis [Recovered/Resolved]
  - Epididymitis [Recovered/Resolved]
  - Acute respiratory failure [Recovered/Resolved]
  - Oral pruritus [Recovered/Resolved]
  - Abdominal pain [Recovered/Resolved]

NARRATIVE: CASE EVENT DATE: 20241223
